FAERS Safety Report 4645654-X (Version None)
Quarter: 2005Q2

REPORT INFORMATION
  Report Type: 
  Country: None (occurrence: None)
  Receive Date: 20050331
  Receipt Date: 20041207
  Transmission Date: 20051028
  Serious: No
  Sender: FDA-Public Use
  Company Number: 04P-163-0282595-00

PATIENT
  Age: 38 Year
  Sex: Female
  Weight: 65.7716 kg

DRUGS (10)
  1. HUMIRA [Suspect]
     Indication: RHEUMATOID ARTHRITIS
     Dosage: 40 MG, 1 IN 2 WK, SUBCUTANEOUS
     Route: 058
     Dates: start: 20041123
  2. BUCINDOLOL HYDROCHLORIDE [Concomitant]
  3. ATORVASTATIN CALCIUM [Concomitant]
  4. LEVOTHYROXINE SODIUM [Concomitant]
  5. PREDNISONE [Concomitant]
  6. LEFLUNOMIDE [Concomitant]
  7. MULTI-VITAMINS [Concomitant]
  8. COLCHICINE [Concomitant]
  9. ESOMEPRAZOLE [Concomitant]
  10. CLONAZEPAM [Concomitant]

REACTIONS (2)
  - HYPOAESTHESIA [None]
  - PARAESTHESIA [None]
